FAERS Safety Report 7199752-X (Version None)
Quarter: 2010Q4

REPORT INFORMATION
  Report Type: 
  Country: None (occurrence: None)
  Receive Date: 20101228
  Receipt Date: 20101217
  Transmission Date: 20110411
  Serious: Yes (Other)
  Sender: FDA-Public Use
  Company Number: PHHY2010DE79700

PATIENT
  Sex: Female
  Weight: 96 kg

DRUGS (5)
  1. FEMARA [Suspect]
     Indication: BREAST CANCER
     Dosage: 2.5 MG, QD
     Route: 048
     Dates: start: 20100601
  2. MARCUPHEN [Concomitant]
     Dosage: 3MG/DAY
     Route: 048
  3. METOHEXAL [Concomitant]
     Dosage: 95MG/DAY
     Route: 048
  4. HYDROCHLOROTHIAZIDE [Concomitant]
     Dosage: 12.5MG/ DAY
     Route: 048
  5. FOSINOPRIL SODIUM [Concomitant]
     Dosage: 20MG/DAY
     Route: 048

REACTIONS (4)
  - DYSPNOEA [None]
  - LUNG INFILTRATION [None]
  - MALAISE [None]
  - ORGANISING PNEUMONIA [None]
